FAERS Safety Report 16352230 (Version 1)
Quarter: 2019Q2

REPORT INFORMATION
  Report Type: Spontaneous
  Country: US (occurrence: US)
  Receive Date: 20190524
  Receipt Date: 20190524
  Transmission Date: 20190711
  Serious: Yes (Hospitalization, Other)
  Sender: FDA-Public Use
  Company Number: US-DRREDDYS-USA/USA/19/0110498

PATIENT
  Age: 4 Year
  Sex: Female
  Weight: 20.2 kg

DRUGS (3)
  1. IMATINIB MESYLATE TABLETS [Suspect]
     Active Substance: IMATINIB MESYLATE
     Indication: HYPEREOSINOPHILIC SYNDROME
  2. HYDROXYUREA. [Concomitant]
     Active Substance: HYDROXYUREA
     Indication: HYPEREOSINOPHILIC SYNDROME
     Dosage: 25 MG/KG ON DAY 2
  3. ENOXAPARIN [Concomitant]
     Active Substance: ENOXAPARIN
     Indication: DEEP VEIN THROMBOSIS

REACTIONS (5)
  - Abdominal pain [Unknown]
  - Hepatotoxicity [Unknown]
  - Neutrophil count decreased [Unknown]
  - Leukostasis syndrome [Unknown]
  - White blood cell count increased [Recovered/Resolved]
